FAERS Safety Report 5945529-X (Version None)
Quarter: 2008Q4

REPORT INFORMATION
  Report Type: 
  Country: None (occurrence: None)
  Receive Date: 20081107
  Receipt Date: 20081028
  Transmission Date: 20090506
  Serious: No
  Sender: FDA-Public Use
  Company Number: US-B.I. PHARMACEUTICALS,INC./RIDGEFIELD-2008-BP-16480BP

PATIENT
  Sex: Female

DRUGS (9)
  1. SPIRIVA [Suspect]
     Indication: EMPHYSEMA
     Dosage: 18MCG
     Route: 055
     Dates: start: 20080401, end: 20081020
  2. SPIRIVA [Suspect]
     Indication: CHRONIC OBSTRUCTIVE PULMONARY DISEASE
  3. SPIRIVA [Suspect]
     Indication: ASTHMA
  4. SINGULAIR [Concomitant]
  5. QVAR 40 [Concomitant]
  6. DILTIAZEM HCL [Concomitant]
     Indication: HYPERTENSION
  7. PREDNISONE TAB [Concomitant]
  8. SIMVASTATIN [Concomitant]
     Indication: BLOOD CHOLESTEROL INCREASED
  9. SALSILATE WITH ALBUTEROL [Concomitant]

REACTIONS (4)
  - BRONCHIAL IRRITATION [None]
  - COUGH [None]
  - DRUG INEFFECTIVE [None]
  - DRY THROAT [None]
